FAERS Safety Report 10061373 (Version 1)
Quarter: 2014Q2

REPORT INFORMATION
  Report Type: Spontaneous
  Country: FR (occurrence: FR)
  Receive Date: 20140407
  Receipt Date: 20140407
  Transmission Date: 20141212
  Serious: Yes (Hospitalization)
  Sender: FDA-Public Use
  Company Number: FR-JNJFOC-20140318920

PATIENT
  Age: 86 Year
  Sex: Female

DRUGS (4)
  1. REMINYL LP [Suspect]
     Indication: PRODUCT USED FOR UNKNOWN INDICATION
     Route: 048
     Dates: start: 20090317
  2. ASPIRIN [Concomitant]
     Route: 048
  3. ALDACTAZINE [Concomitant]
     Route: 048
  4. CRESTOR [Concomitant]
     Route: 048

REACTIONS (3)
  - Loss of consciousness [Recovered/Resolved]
  - Diarrhoea [Recovered/Resolved]
  - Vomiting [Recovered/Resolved]
